FAERS Safety Report 22162856 (Version 1)
Quarter: 2023Q1

REPORT INFORMATION
  Report Type: Spontaneous
  Country: JP (occurrence: JP)
  Receive Date: 20230331
  Receipt Date: 20230331
  Transmission Date: 20230417
  Serious: Yes (Other)
  Sender: FDA-Public Use
  Company Number: JP-MSD-M2023-05933

PATIENT
  Age: 26 Year
  Sex: Female

DRUGS (5)
  1. KEYTRUDA [Suspect]
     Active Substance: PEMBROLIZUMAB
     Indication: Triple negative breast cancer
     Dosage: 200 MILLIGRAM, Q3W
     Route: 041
     Dates: start: 20230209
  2. PACLITAXEL [Concomitant]
     Active Substance: PACLITAXEL
     Indication: Triple negative breast cancer
     Dosage: 80 MILLIGRAM/SQ. METER, QW
     Route: 041
     Dates: start: 20230209, end: 20230209
  3. CARBOPLATIN [Concomitant]
     Active Substance: CARBOPLATIN
     Indication: Triple negative breast cancer
     Dosage: AUC5,Q3W
     Route: 041
     Dates: start: 20230209, end: 20230209
  4. EPIRUBICIN [Concomitant]
     Active Substance: EPIRUBICIN
     Indication: Triple negative breast cancer
     Dosage: 90 MILLIGRAM/SQ. METER, Q3W
     Route: 041
  5. CYCLOPHOSPHAMIDE [Concomitant]
     Active Substance: CYCLOPHOSPHAMIDE
     Indication: Triple negative breast cancer
     Dosage: 600 MILLIGRAM/SQ. METER, Q3W
     Route: 041

REACTIONS (3)
  - Febrile neutropenia [Unknown]
  - Hypersensitivity [Recovered/Resolved]
  - Thyroid disorder [Not Recovered/Not Resolved]

NARRATIVE: CASE EVENT DATE: 20230209
